FAERS Safety Report 8950783 (Version 5)
Quarter: 2013Q1

REPORT INFORMATION
  Report Type: Spontaneous
  Country: FR (occurrence: FR)
  Receive Date: 20121206
  Receipt Date: 20130226
  Transmission Date: 20140127
  Serious: Yes (Hospitalization)
  Sender: FDA-Public Use
  Company Number: FR-ALLERGAN-1216105US

PATIENT
  Age: 79 Year
  Sex: Female

DRUGS (1)
  1. OZURDEX [Suspect]
     Indication: MACULAR OEDEMA
     Dosage: 0.7 MG, SINGLE
     Route: 031
     Dates: start: 20121115, end: 20121115

REACTIONS (3)
  - Pseudoendophthalmitis [Recovering/Resolving]
  - Anterior chamber inflammation [Recovering/Resolving]
  - Conjunctival haemorrhage [Recovering/Resolving]
